FAERS Safety Report 16687882 (Version 2)
Quarter: 2019Q3

REPORT INFORMATION
  Report Type: Spontaneous
  Country: CN (occurrence: CN)
  Receive Date: 20190809
  Receipt Date: 20190821
  Transmission Date: 20191004
  Serious: No
  Sender: FDA-Public Use
  Company Number: CN-BAYER-2019-144512

PATIENT
  Age: 46 Year
  Sex: Male

DRUGS (1)
  1. NEXAVAR [Suspect]
     Active Substance: SORAFENIB
     Indication: HEPATIC CANCER
     Dosage: 400 MG, BID
     Route: 048
     Dates: start: 201907

REACTIONS (3)
  - Alpha 1 foetoprotein increased [None]
  - Pre-existing condition improved [None]
  - Drug ineffective [None]

NARRATIVE: CASE EVENT DATE: 2019
